FAERS Safety Report 13251807 (Version 1)
Quarter: 2017Q1

REPORT INFORMATION
  Report Type: Spontaneous
  Country: US (occurrence: US)
  Receive Date: 20170220
  Receipt Date: 20170220
  Transmission Date: 20170428
  Serious: No
  Sender: FDA-Public Use
  Company Number: US-PFIZER INC-2017068559

PATIENT
  Sex: Female

DRUGS (1)
  1. XELJANZ XR [Suspect]
     Active Substance: TOFACITINIB CITRATE
     Indication: RHEUMATOID ARTHRITIS
     Dosage: 11 MG, UNK

REACTIONS (14)
  - Temperature intolerance [Unknown]
  - Vulvovaginal mycotic infection [Unknown]
  - Fatigue [Unknown]
  - Arthralgia [Unknown]
  - Oral fungal infection [Unknown]
  - Myalgia [Unknown]
  - Weight increased [Unknown]
  - Dry eye [Unknown]
  - Joint swelling [Unknown]
  - Pyrexia [Unknown]
  - Muscle spasms [Unknown]
  - Joint stiffness [Unknown]
  - Musculoskeletal stiffness [Unknown]
  - Blood pressure increased [Unknown]
